FAERS Safety Report 13944359 (Version 1)
Quarter: 2017Q3

REPORT INFORMATION
  Report Type: Spontaneous
  Country: US (occurrence: US)
  Receive Date: 20170907
  Receipt Date: 20170907
  Transmission Date: 20171128
  Serious: Yes (Hospitalization)
  Sender: FDA-Public Use
  Company Number: US-ROCHE-1294831

PATIENT
  Age: 50 Year
  Sex: Female

DRUGS (1)
  1. RITUXAN [Suspect]
     Active Substance: RITUXIMAB
     Indication: VASCULITIS
     Dosage: DATE OF THE LAST DOSE OF RITUXIMAB : 17/OCT/2013
     Route: 065

REACTIONS (8)
  - Pruritus generalised [Unknown]
  - Rash generalised [Unknown]
  - Pyrexia [Unknown]
  - Arthralgia [Unknown]
  - Hypertension [Unknown]
  - Generalised erythema [Unknown]
  - Urticaria [Unknown]
  - Serum sickness [Recovering/Resolving]
